FAERS Safety Report 9459897 (Version 1)
Quarter: 2013Q3

REPORT INFORMATION
  Report Type: Spontaneous
  Country: US (occurrence: US)
  Receive Date: 20130815
  Receipt Date: 20130815
  Transmission Date: 20140515
  Serious: No
  Sender: FDA-Public Use
  Company Number: US-TEVA-426427USA

PATIENT
  Age: 33 Year
  Sex: Female

DRUGS (1)
  1. COPAXONE [Suspect]
     Indication: RELAPSING-REMITTING MULTIPLE SCLEROSIS
     Dosage: 20 MG/ML DAILY
     Route: 058
     Dates: start: 2009

REACTIONS (3)
  - Injection site urticaria [Recovered/Resolved]
  - Skin discolouration [Recovered/Resolved]
  - Injection site induration [Recovered/Resolved]
